FAERS Safety Report 8803693 (Version 2)
Quarter: 2012Q4

REPORT INFORMATION
  Report Type: 
  Country: JP (occurrence: JP)
  Receive Date: 20120924
  Receipt Date: 20121011
  Transmission Date: 20130627
  Serious: Yes (Hospitalization, Other)
  Sender: FDA-Public Use
  Company Number: JP-AMGEN-JPNSP2012059336

PATIENT
  Age: 69 Year
  Sex: Female

DRUGS (11)
  1. ARANESP [Suspect]
     Indication: NEPHROGENIC ANAEMIA
     Dates: end: 20120913
  2. CALBLOCK [Concomitant]
     Dosage: 16 mg, qd
     Route: 048
  3. SODIUM BICARBONATE [Concomitant]
     Dosage: 5 g, bid
     Route: 048
  4. KALIMATE [Concomitant]
     Dosage: 10.8 g, bid
     Route: 048
  5. CALTAN OD [Concomitant]
     Dosage: 1000 mg, bid
     Route: 048
  6. KREMEZIN [Concomitant]
     Dosage: 3 DF, tid
     Route: 048
  7. NIFEDIPINE CR [Concomitant]
     Dosage: 20 mg, qd
     Route: 048
  8. ATELEC [Concomitant]
     Dosage: 10 mg, qd
     Route: 048
  9. ONEALFA [Concomitant]
     Route: 048
  10. LAC-B [Concomitant]
     Dosage: 2 g, bid
     Route: 048
  11. PORTOLAC [Concomitant]
     Dosage: 18 g, bid
     Route: 048

REACTIONS (1)
  - Aplasia pure red cell [Not Recovered/Not Resolved]
